FAERS Safety Report 9222205 (Version 1)
Quarter: 2013Q2

REPORT INFORMATION
  Report Type: Spontaneous
  Country: US (occurrence: None)
  Receive Date: 20130408
  Receipt Date: 20130408
  Transmission Date: 20140414
  Serious: Yes (Death)
  Sender: FDA-Public Use
  Company Number: 2013-US-0117

PATIENT
  Age: 69 Year
  Sex: Male
  Weight: 81.65 kg

DRUGS (3)
  1. ABSTRAL [Suspect]
     Indication: PAIN
     Dosage: 1-2 TABS Q2 HRS PRN
     Dates: start: 20110830
  2. AMBIEN (ZOLPIDEM TARTRATE) [Concomitant]
  3. CELEBREX (CELECOXIB) [Concomitant]

REACTIONS (1)
  - Lung neoplasm malignant [None]
